FAERS Safety Report 5343464-1 (Version None)
Quarter: 2007Q2

REPORT INFORMATION
  Report Type: 
  Country: None (occurrence: None)
  Receive Date: 20070531
  Receipt Date: 20070522
  Transmission Date: 20071010
  Serious: Yes (Hospitalization)
  Sender: FDA-Public Use
  Company Number: 2007-02472

PATIENT
  Age: 86 Year
  Sex: Male

DRUGS (6)
  1. TRELSTAR LA  (WITH CLIP'N JECT) (WATSON LABORATORIES)(TRIPTORELIN PAMO [Suspect]
     Indication: PROSTATE CANCER
     Dosage: 11.25 MG, ONCE EVERY 3 MONTHS, INTRAMUSCULAR
     Route: 030
     Dates: start: 20061221
  2. ALVITYL (VITAMINS NOS) [Suspect]
     Indication: MALNUTRITION
     Dosage: ORAL
     Route: 048
     Dates: start: 20070316, end: 20070331
  3. RISPERDAL [Concomitant]
  4. VALSARTAN [Concomitant]
  5. SERETIDE MITE (FLUTICASONE PROPIONATE,  SALMETEROL XINAFOATE) [Concomitant]
  6. DULCIPHAK (MONOMETHYLTRISILANOL OTHOHYDROXBENZOATE SOD) [Concomitant]

REACTIONS (4)
  - ARTHRITIS [None]
  - PETECHIAE [None]
  - PURPURA [None]
  - PYREXIA [None]
